FAERS Safety Report 22145770 (Version 1)
Quarter: 2023Q1

REPORT INFORMATION
  Report Type: Spontaneous
  Country: ES (occurrence: ES)
  Receive Date: 20230328
  Receipt Date: 20230328
  Transmission Date: 20230418
  Serious: Yes (Life-Threatening, Hospitalization)
  Sender: FDA-Public Use
  Company Number: None

PATIENT
  Age: 27 Year
  Sex: Female
  Weight: 59 kg

DRUGS (3)
  1. CISPLATIN [Suspect]
     Active Substance: CISPLATIN
     Indication: Germ cell neoplasm
     Dosage: STRENGTH: 1 MG/ML, 1 VIAL OF 10 ML, BEP SCHEME (CHEMOTHERAPY)
     Dates: start: 20221212, end: 20230213
  2. BLEOMYCIN [Suspect]
     Active Substance: BLEOMYCIN SULFATE
     Indication: Germ cell neoplasm
     Dosage: STRENGTH:  15,000 IU, 1 VIAL, BEP CHEMOTHERAPY SCHEME (4 CYCLES)
     Dates: start: 20221212, end: 20230130
  3. ETOPOSIDE [Suspect]
     Active Substance: ETOPOSIDE
     Indication: Germ cell neoplasm
     Dosage: STRENGTH: 20 MG/ML, 1?VIAL OF 5 ML, BEP SCHEME (CHEMOTHERAPY)
     Dates: start: 20221212, end: 20230213

REACTIONS (1)
  - Pulmonary toxicity [Recovering/Resolving]

NARRATIVE: CASE EVENT DATE: 20230127
